FAERS Safety Report 21958200 (Version 2)
Quarter: 2023Q1

REPORT INFORMATION
  Report Type: Spontaneous
  Country: HU (occurrence: HU)
  Receive Date: 20230206
  Receipt Date: 20230220
  Transmission Date: 20230418
  Serious: Yes (Death, Hospitalization, Other)
  Sender: FDA-Public Use
  Company Number: HU-ROCHE-3254817

PATIENT
  Age: 43 Year
  Sex: Male

DRUGS (14)
  1. LENALIDOMIDE [Suspect]
     Active Substance: LENALIDOMIDE
     Indication: Hairy cell leukaemia
     Dosage: FOUR CYCLES OF RITUXIMAB,LENALIDOMIDE (4X R-LEN)
     Route: 065
  2. LENALIDOMIDE [Suspect]
     Active Substance: LENALIDOMIDE
     Indication: Diffuse large B-cell lymphoma
  3. OXALIPLATIN [Suspect]
     Active Substance: OXALIPLATIN
     Indication: Hairy cell leukaemia
     Dosage: UNK,CYCLICAL,POLA-RGEMOX
     Route: 065
  4. GEMCITABINE [Suspect]
     Active Substance: GEMCITABINE
     Indication: Hairy cell leukaemia
     Dosage: UNK, CYCLICAL, POLA-RGEMOX
     Route: 065
  5. POLATUZUMAB VEDOTIN [Suspect]
     Active Substance: POLATUZUMAB VEDOTIN
     Indication: Hairy cell leukaemia
     Dosage: UNK, POLATUZUMAB-RITUXIMAB-BENDAMUSTINE, 3 CYCLES
     Route: 065
     Dates: end: 202007
  6. POLATUZUMAB VEDOTIN [Suspect]
     Active Substance: POLATUZUMAB VEDOTIN
     Dosage: POLATUZUMAB,RITUXIMAB,GEMCITABINE AND OXALIPLATIN
     Route: 065
  7. RITUXIMAB [Suspect]
     Active Substance: RITUXIMAB
     Indication: Hairy cell leukaemia
     Dosage: EIGHT CYCLES OF RITUXIMAB, EACH TIME 375 MG/M2
     Route: 042
     Dates: end: 201904
  8. RITUXIMAB [Suspect]
     Active Substance: RITUXIMAB
     Indication: Diffuse large B-cell lymphoma
     Dosage: SWITCHED TO POLATUZUMAB-RITUXIMAB-BENDAMUSTINE
     Route: 065
     Dates: end: 202007
  9. RITUXIMAB [Suspect]
     Active Substance: RITUXIMAB
     Dosage: 375 MILLIGRAM/SQ. METER,375 MG/M2
     Route: 042
  10. RITUXIMAB [Suspect]
     Active Substance: RITUXIMAB
     Dosage: UNK,FOUR CYCLES OF RITUXIMABLENALIDOMIDE(4XR-LEN)
     Route: 065
  11. RITUXIMAB [Suspect]
     Active Substance: RITUXIMAB
     Dosage: UNK, CYCLICAL, POLA-R-GEMOX
     Route: 065
  12. CLADRIBINE [Suspect]
     Active Substance: CLADRIBINE
     Indication: Hairy cell leukaemia
     Dosage: UNK
     Route: 058
     Dates: start: 201901
  13. BENDAMUSTINE [Suspect]
     Active Substance: BENDAMUSTINE
     Indication: Hairy cell leukaemia
     Dosage: CYCLICAL,POLA-BR), 3 CYCLES
     Route: 065
     Dates: end: 202007
  14. BENDAMUSTINE [Concomitant]
     Active Substance: BENDAMUSTINE
     Dosage: UNK
     Route: 065

REACTIONS (9)
  - COVID-19 [Fatal]
  - Pneumonia [Fatal]
  - Pulmonary embolism [Unknown]
  - Perirectal abscess [Unknown]
  - Vertigo [Unknown]
  - Decreased appetite [Unknown]
  - Asthenia [Unknown]
  - Product use issue [Unknown]
  - Off label use [Unknown]
